FAERS Safety Report 5587871-0 (Version None)
Quarter: 2007Q4

REPORT INFORMATION
  Report Type: 
  Country: None (occurrence: None)
  Receive Date: 20071211
  Receipt Date: 20071004
  Transmission Date: 20080405
  Serious: No
  Sender: FDA-Public Use
  Company Number: 002#1#2007-00212

PATIENT
  Age: 84 Year
  Sex: Male
  Weight: 86.1834 kg

DRUGS (1)
  1. NEUPRO [Suspect]
     Indication: DRUG USE FOR UNKNOWN INDICATION
     Dosage: 2MG/24H,1 IN 1 D,TRANSDERMAL
     Route: 062
     Dates: start: 20070909, end: 20070910

REACTIONS (2)
  - GAIT DISTURBANCE [None]
  - TREMOR [None]
